FAERS Safety Report 20322426 (Version 1)
Quarter: 2022Q1

REPORT INFORMATION
  Report Type: Spontaneous
  Country: US (occurrence: US)
  Receive Date: 20220111
  Receipt Date: 20220111
  Transmission Date: 20220423
  Serious: No
  Sender: FDA-Public Use
  Company Number: US-ABBVIE-21K-163-3902960-00

PATIENT
  Sex: Male
  Weight: 62.198 kg

DRUGS (2)
  1. DUOPA [Suspect]
     Active Substance: CARBIDOPA\LEVODOPA
     Indication: Product used for unknown indication
     Route: 050
  2. DUOPA [Suspect]
     Active Substance: CARBIDOPA\LEVODOPA

REACTIONS (14)
  - Diarrhoea [Unknown]
  - Coeliac disease [Unknown]
  - Parkinsonism [Unknown]
  - Head injury [Unknown]
  - Mobility decreased [Unknown]
  - Asthenia [Unknown]
  - Chromaturia [Unknown]
  - Urinary tract infection [Unknown]
  - Pneumonia [Unknown]
  - Tooth extraction [Unknown]
  - Weight decreased [Unknown]
  - Device use error [Unknown]
  - Hip fracture [Unknown]
  - Rash [Unknown]
